FAERS Safety Report 20903619 (Version 1)
Quarter: 2022Q2

REPORT INFORMATION
  Report Type: Spontaneous
  Country: SK (occurrence: SK)
  Receive Date: 20220602
  Receipt Date: 20220602
  Transmission Date: 20220720
  Serious: Yes (Other)
  Sender: FDA-Public Use
  Company Number: None

PATIENT
  Age: 31 Year
  Sex: Female
  Weight: 54 kg

DRUGS (1)
  1. AZITHROMYCIN ANHYDROUS [Suspect]
     Active Substance: AZITHROMYCIN ANHYDROUS
     Indication: Upper respiratory tract inflammation
     Dosage: UNIT DOSE : 500 MG , FREQUENCY TIME : 24 HOURS , DURATION : 3 DAYS
     Dates: start: 20220222, end: 20220224

REACTIONS (2)
  - Diarrhoea haemorrhagic [Unknown]
  - Abdominal rigidity [Unknown]

NARRATIVE: CASE EVENT DATE: 20220223
